FAERS Safety Report 9570427 (Version 1)
Quarter: 2013Q1

REPORT INFORMATION
  Report Type: Spontaneous
  Country: US (occurrence: None)
  Receive Date: 20120827
  Receipt Date: 20120827
  Transmission Date: 20140127
  Serious: No
  Sender: FDA-Public Use
  Company Number: 356852

PATIENT
  Sex: Male

DRUGS (2)
  1. VICTOZA (LIRAGLUTIDE) SOLUTION FOR INJECTION, 6MG/ML [Suspect]
     Indication: TYPE 2 DIABETES MELLITUS
     Dosage: 0.6 MG, QD, SUBCUTANEOUS
     Route: 058
  2. GLIPIZIDE (GLIPIZIDE) [Suspect]
     Indication: TYPE 2 DIABETES MELLITUS
     Dosage: UNK, ORAL
     Route: 048

REACTIONS (3)
  - Nausea [None]
  - Headache [None]
  - Malaise [None]
